FAERS Safety Report 22891828 (Version 3)
Quarter: 2024Q2

REPORT INFORMATION
  Report Type: Spontaneous
  Country: US (occurrence: US)
  Receive Date: 20230901
  Receipt Date: 20240425
  Transmission Date: 20240716
  Serious: No
  Sender: FDA-Public Use
  Company Number: US-SA-SAC20230825000983

PATIENT
  Age: 45 Year
  Sex: Male

DRUGS (2)
  1. DUPIXENT [Suspect]
     Active Substance: DUPILUMAB
     Indication: Eczema
     Dosage: 600 MG, 1X
     Route: 058
     Dates: start: 202306, end: 202306
  2. DUPIXENT [Suspect]
     Active Substance: DUPILUMAB
     Indication: Dermatitis atopic
     Dosage: 300 MG, QOW
     Route: 058
     Dates: start: 202307

REACTIONS (3)
  - Oral disorder [Unknown]
  - Pruritus [Unknown]
  - Gingival discolouration [Unknown]

NARRATIVE: CASE EVENT DATE: 20230101
